FAERS Safety Report 6718266-1 (Version None)
Quarter: 2010Q2

REPORT INFORMATION
  Report Type: 
  Country: None (occurrence: None)
  Receive Date: 20100505
  Receipt Date: 20100427
  Transmission Date: 20101027
  Serious: Yes (Other)
  Sender: FDA-Public Use
  Company Number: 20108650

PATIENT
  Sex: Female

DRUGS (1)
  1. LIORESAL [Suspect]
     Indication: MUSCLE SPASTICITY
     Dosage: 1610 - 1800MCG, DAILY, INTRATHECAL
     Route: 037

REACTIONS (2)
  - MEDICAL DEVICE COMPLICATION [None]
  - MUSCLE CONTRACTIONS INVOLUNTARY [None]
